FAERS Safety Report 18006096 (Version 2)
Quarter: 2020Q3

REPORT INFORMATION
  Report Type: Spontaneous
  Country: PT (occurrence: PT)
  Receive Date: 20200709
  Receipt Date: 20200721
  Transmission Date: 20201103
  Serious: Yes (Other)
  Sender: FDA-Public Use
  Company Number: PHHY2017PT048895

PATIENT
  Age: 42 Year
  Sex: Male

DRUGS (4)
  1. RIFAMPICIN [Interacting]
     Active Substance: RIFAMPIN
     Indication: TUBERCULOSIS
     Dosage: UNK
     Route: 065
  2. RIFAMPICIN [Interacting]
     Active Substance: RIFAMPIN
     Indication: TUBERCULOUS PLEURISY
  3. TACROLIMUS. [Suspect]
     Active Substance: TACROLIMUS
     Indication: IMMUNOSUPPRESSION
     Dosage: UNK
     Route: 065
  4. MYCOPHENOLATE MOFETIL. [Suspect]
     Active Substance: MYCOPHENOLATE MOFETIL
     Indication: IMMUNOSUPPRESSION
     Dosage: UNK
     Route: 065

REACTIONS (10)
  - Hepatic enzyme increased [Unknown]
  - Extrapulmonary tuberculosis [Recovered/Resolved]
  - Tuberculosis [Recovered/Resolved]
  - Transplant rejection [Unknown]
  - Biopsy liver abnormal [Unknown]
  - Tuberculous pleurisy [Recovered/Resolved]
  - Liver transplant rejection [Unknown]
  - Immunosuppressant drug level decreased [Unknown]
  - Drug interaction [Unknown]
  - Drug level decreased [Unknown]

NARRATIVE: CASE EVENT DATE: 2010
